FAERS Safety Report 9259193 (Version 4)
Quarter: 2013Q2

REPORT INFORMATION
  Report Type: Spontaneous
  Country: US (occurrence: US)
  Receive Date: 20130426
  Receipt Date: 20130606
  Transmission Date: 20140414
  Serious: Yes (Other)
  Sender: FDA-Public Use
  Company Number: CHPA2013US006979

PATIENT
  Age: 91 Year
  Sex: Male

DRUGS (3)
  1. VOLTAREN GEL [Suspect]
     Indication: PLANTAR FASCIITIS
     Dosage: 4 OUNCES 1-2 TIMES DAILY
     Route: 061
     Dates: start: 20130418, end: 20130421
  2. VOLTAREN GEL [Suspect]
     Indication: PERIPHERAL NERVE INJURY
     Dosage: UNK, UNK
     Dates: start: 20130425
  3. ANTIHYPERTENSIVES [Concomitant]
     Indication: HYPERTENSION
     Dosage: 0.5DF, BID
     Route: 048

REACTIONS (9)
  - Hypertension [Recovered/Resolved]
  - Neoplasm malignant [Recovered/Resolved]
  - Burning sensation [Recovered/Resolved]
  - Pain in extremity [Recovering/Resolving]
  - Feeling abnormal [Recovered/Resolved]
  - Dizziness [Recovered/Resolved]
  - Off label use [Unknown]
  - Therapeutic response unexpected [Unknown]
  - Wrong technique in drug usage process [Unknown]
